FAERS Safety Report 6080085-X (Version None)
Quarter: 2009Q1

REPORT INFORMATION
  Report Type: 
  Country: None (occurrence: None)
  Receive Date: 20090217
  Receipt Date: 20090209
  Transmission Date: 20090719
  Serious: Yes (Other)
  Sender: FDA-Public Use
  Company Number: PHHO2007MX16074

PATIENT
  Sex: Male

DRUGS (7)
  1. TEGRETOL [Suspect]
     Indication: PSYCHOMOTOR HYPERACTIVITY
     Dosage: 200 MG, QD
     Dates: start: 20070401, end: 20070914
  2. TEGRETOL [Suspect]
     Indication: NERVOUS SYSTEM DISORDER
  3. TEGRETOL [Suspect]
     Indication: MENTAL RETARDATION
  4. RITALIN [Concomitant]
     Dosage: UNK
  5. RISPERDAL [Concomitant]
     Dosage: UNK
  6. SALBUTAMOL [Concomitant]
  7. TRILEPTAL [Concomitant]
     Dosage: UNK
     Dates: start: 20070914

REACTIONS (5)
  - DRUG LEVEL INCREASED [None]
  - LIVER DISORDER [None]
  - MENTAL RETARDATION [None]
  - SLEEP DISORDER [None]
  - VISUAL ACUITY REDUCED [None]
